FAERS Safety Report 16065135 (Version 1)
Quarter: 2019Q1

REPORT INFORMATION
  Report Type: Spontaneous
  Country: US (occurrence: US)
  Receive Date: 20190313
  Receipt Date: 20190313
  Transmission Date: 20190418
  Serious: No
  Sender: FDA-Public Use
  Company Number: PHEH2019US010305

PATIENT
  Sex: Male

DRUGS (1)
  1. MEKINIST [Suspect]
     Active Substance: TRAMETINIB DIMETHYL SULFOXIDE
     Indication: NERVOUS SYSTEM NEOPLASM BENIGN
     Dosage: 0.5 MG, QD
     Route: 048
     Dates: start: 20170905

REACTIONS (2)
  - Nail infection [Unknown]
  - Product use in unapproved indication [Unknown]
